FAERS Safety Report 7853092-1 (Version None)
Quarter: 2011Q3

REPORT INFORMATION
  Report Type: 
  Country: None (occurrence: None)
  Receive Date: 20110915
  Receipt Date: 20110428
  Transmission Date: 20111222
  Serious: Yes (Hospitalization)
  Sender: FDA-Public Use
  Company Number: 2011028381

PATIENT
  Sex: Male
  Weight: 92.9 kg

DRUGS (4)
  1. PRIVIGEN [Suspect]
  2. MEDICAL MARIJUANA (CANNABIS SATIVA) [Concomitant]
  3. PRIVIGEN [Suspect]
     Indication: IMMUNODEFICIENCY COMMON VARIABLE
     Dosage: SEE IMAGE
     Route: 042
  4. SOLU-MEDROL [Concomitant]

REACTIONS (11)
  - HEADACHE [None]
  - NECK PAIN [None]
  - MENINGITIS ASEPTIC [None]
  - ARTHRALGIA [None]
  - NAUSEA [None]
  - LEUKOCYTOSIS [None]
  - HOT FLUSH [None]
  - MALAISE [None]
  - BACK PAIN [None]
  - PHOTOPHOBIA [None]
  - CHILLS [None]
